FAERS Safety Report 15814734 (Version 2)
Quarter: 2019Q4

REPORT INFORMATION
  Report Type: Report from Study
  Country: US (occurrence: US)
  Receive Date: 20190111
  Receipt Date: 20191118
  Transmission Date: 20200122
  Serious: No
  Sender: FDA-Public Use
  Company Number: US-AMGEN-USASP2019001796

PATIENT
  Age: 24 Year
  Sex: Female

DRUGS (1)
  1. TALIMOGENE LAHERPAREPVEC [Suspect]
     Active Substance: TALIMOGENE LAHERPAREPVEC
     Indication: TRIPLE NEGATIVE BREAST CANCER
     Dosage: UNK
     Route: 065
     Dates: start: 20181219

REACTIONS (2)
  - Herpes virus infection [Unknown]
  - Breast discharge [Unknown]

NARRATIVE: CASE EVENT DATE: 20190102
